FAERS Safety Report 15311023 (Version 1)
Quarter: 2018Q3

REPORT INFORMATION
  Report Type: Spontaneous
  Country: US (occurrence: US)
  Receive Date: 20180814
  Receipt Date: 20180814
  Transmission Date: 20181010
  Serious: Yes (Disabling)
  Sender: FDA-Public Use
  Company Number: None

PATIENT
  Age: 54 Year
  Sex: Female
  Weight: 65.7 kg

DRUGS (13)
  1. CALCIUM [Concomitant]
     Active Substance: CALCIUM
  2. MAGNESIUM [Concomitant]
     Active Substance: MAGNESIUM
  3. DHEA [Concomitant]
     Active Substance: PRASTERONE
  4. COQ10 [Concomitant]
     Active Substance: UBIDECARENONE
  5. FISH OIL [Concomitant]
     Active Substance: FISH OIL
  6. TESTOSTERONE/PROGESTERONE CREAM [Concomitant]
  7. ZOLOFT [Concomitant]
     Active Substance: SERTRALINE HYDROCHLORIDE
  8. VITAMIN D [Concomitant]
     Active Substance: CHOLECALCIFEROL
  9. VITAMIN C [Concomitant]
     Active Substance: ASCORBIC ACID
  10. KELP [Concomitant]
     Active Substance: KELP
  11. NATURE?THROID [Suspect]
     Active Substance: THYROID, PORCINE
     Indication: HYPOTHYROIDISM
     Dosage: ?          QUANTITY:1 DF DOSAGE FORM;?
     Route: 048
     Dates: start: 20180623, end: 20180716
  12. BIOTIN [Concomitant]
     Active Substance: BIOTIN
  13. STRONTIUM [Concomitant]
     Active Substance: STRONTIUM

REACTIONS (8)
  - Somnolence [None]
  - Hypersensitivity [None]
  - Headache [None]
  - Lethargy [None]
  - Allergic reaction to excipient [None]
  - Loss of personal independence in daily activities [None]
  - Upper-airway cough syndrome [None]
  - Mycotic allergy [None]

NARRATIVE: CASE EVENT DATE: 20180730
